FAERS Safety Report 13480370 (Version 1)
Quarter: 2017Q2

REPORT INFORMATION
  Report Type: Spontaneous
  Country: FR (occurrence: FR)
  Receive Date: 20170425
  Receipt Date: 20170425
  Transmission Date: 20170830
  Serious: Yes (Hospitalization, Congenital Anomaly, Other)
  Sender: FDA-Public Use
  Company Number: FR-ELI_LILLY_AND_COMPANY-FR201704006025

PATIENT
  Age: 8 Day
  Sex: Female

DRUGS (7)
  1. KARDEGIC [Suspect]
     Active Substance: ASPIRIN LYSINE
     Indication: HYPERTENSION
     Dosage: UNK, UNKNOWN
     Route: 064
  2. BIPRETERAX                         /01421201/ [Suspect]
     Active Substance: INDAPAMIDE\PERINDOPRIL ERBUMINE
     Indication: HYPERTENSION
     Dosage: UNK, UNKNOWN
     Route: 064
  3. KARDEGIC [Suspect]
     Active Substance: ASPIRIN LYSINE
     Indication: OBESITY
  4. KARDEGIC [Suspect]
     Active Substance: ASPIRIN LYSINE
     Indication: TOBACCO USER
  5. CYMBALTA [Suspect]
     Active Substance: DULOXETINE HYDROCHLORIDE
     Indication: MAJOR DEPRESSION
     Dosage: UNK, UNKNOWN
     Route: 064
  6. DEPAKOTE [Suspect]
     Active Substance: DIVALPROEX SODIUM
     Indication: MAJOR DEPRESSION
     Dosage: UNK, UNKNOWN
     Route: 064
  7. SERESTA [Suspect]
     Active Substance: OXAZEPAM
     Indication: MAJOR DEPRESSION
     Dosage: UNK, UNKNOWN
     Route: 064

REACTIONS (3)
  - Pulmonary artery stenosis congenital [Not Recovered/Not Resolved]
  - Foetal growth restriction [Not Recovered/Not Resolved]
  - Foetal exposure during pregnancy [Recovered/Resolved]

NARRATIVE: CASE EVENT DATE: 20150326
